FAERS Safety Report 18752399 (Version 2)
Quarter: 2021Q1

REPORT INFORMATION
  Report Type: Spontaneous
  Country: US (occurrence: US)
  Receive Date: 20210118
  Receipt Date: 20210122
  Transmission Date: 20210419
  Serious: Yes (Hospitalization, Other)
  Sender: FDA-Public Use
  Company Number: US-PFIZER INC-2021020776

PATIENT
  Age: 70 Year
  Sex: Female

DRUGS (4)
  1. DROPERIDOL. [Suspect]
     Active Substance: DROPERIDOL
     Indication: NAUSEA
     Dosage: 2.5 MG
     Route: 042
  2. DROPERIDOL. [Suspect]
     Active Substance: DROPERIDOL
     Indication: VOMITING
  3. METOCLOPRAMIDE. [Concomitant]
     Active Substance: METOCLOPRAMIDE
     Indication: NAUSEA
     Dosage: 10 MG
  4. METOCLOPRAMIDE. [Concomitant]
     Active Substance: METOCLOPRAMIDE
     Indication: VOMITING

REACTIONS (3)
  - Syncope [Unknown]
  - Torsade de pointes [Unknown]
  - Bundle branch block left [Unknown]
